FAERS Safety Report 19642715 (Version 1)
Quarter: 2021Q3

REPORT INFORMATION
  Report Type: Other
  Country: KR (occurrence: KR)
  Receive Date: 20210730
  Receipt Date: 20210730
  Transmission Date: 20211014
  Serious: No
  Sender: FDA-Public Use
  Company Number: KR-JACOBUS PHARMACEUTICAL COMPANY, INC.-2114476

PATIENT

DRUGS (1)
  1. DAPSONE. [Suspect]
     Active Substance: DAPSONE
     Indication: COGNITIVE DISORDER
     Route: 048
     Dates: start: 2010, end: 2020

REACTIONS (18)
  - Myocarditis [Unknown]
  - Hepatitis [Unknown]
  - Haemolytic anaemia [Unknown]
  - Pancreatitis [Unknown]
  - Pneumonitis [Unknown]
  - Pneumonia [Unknown]
  - Methaemoglobinaemia [Unknown]
  - Atrioventricular block [Unknown]
  - Rash [Unknown]
  - Dermatitis exfoliative generalised [Unknown]
  - Leukocytosis [Unknown]
  - Infectious mononucleosis [Unknown]
  - Acute kidney injury [Unknown]
  - Cholangitis [Unknown]
  - Pleural effusion [Unknown]
  - Rash [None]
  - Eosinophilia [Unknown]
  - Multiple organ dysfunction syndrome [Unknown]
